FAERS Safety Report 8230813-X (Version None)
Quarter: 2012Q1

REPORT INFORMATION
  Report Type: 
  Country: None (occurrence: None)
  Receive Date: 20120323
  Receipt Date: 20120316
  Transmission Date: 20120608
  Serious: Yes (Other)
  Sender: FDA-Public Use
  Company Number: US-JNJFOC-20120310039

PATIENT
  Age: 62 Year
  Sex: Male
  Weight: 79.38 kg

DRUGS (2)
  1. SUDAFED 12 HOUR [Suspect]
     Route: 048
  2. SUDAFED 12 HOUR [Suspect]
     Indication: INFECTION PROPHYLAXIS
     Dosage: AS DIRECTED
     Route: 048

REACTIONS (2)
  - CONDITION AGGRAVATED [None]
  - PYREXIA [None]
